FAERS Safety Report 20236411 (Version 1)
Quarter: 2021Q4

REPORT INFORMATION
  Report Type: Spontaneous
  Country: US (occurrence: None)
  Receive Date: 20211227
  Receipt Date: 20211227
  Transmission Date: 20220303
  Serious: Yes (Disabling)
  Sender: FDA-Public Use
  Company Number: None

PATIENT
  Age: 40 Year
  Sex: Male
  Weight: 72 kg

DRUGS (2)
  1. LOTRIMIN ANTIFUNGAL (MICONAZOLE NITRATE) [Suspect]
     Active Substance: MICONAZOLE NITRATE
     Indication: Tinea cruris
     Dosage: OTHER QUANTITY : 4.6 OUNCE(S);?FREQUENCY : TWICE A DAY;?
     Route: 061
     Dates: end: 20210804
  2. ALLERGY MEDS OTC [Concomitant]

REACTIONS (2)
  - Genital pain [None]
  - Rash [None]

NARRATIVE: CASE EVENT DATE: 20190801
